FAERS Safety Report 22987219 (Version 2)
Quarter: 2023Q4

REPORT INFORMATION
  Report Type: Spontaneous
  Country: US (occurrence: US)
  Receive Date: 20230926
  Receipt Date: 20231026
  Transmission Date: 20240109
  Serious: No
  Sender: FDA-Public Use
  Company Number: US-SA-SAC20230915001076

PATIENT
  Sex: Male

DRUGS (1)
  1. DUPIXENT [Suspect]
     Active Substance: DUPILUMAB
     Dosage: 300MG, OTHER
     Route: 058

REACTIONS (4)
  - Chapped lips [Unknown]
  - Lip dry [Unknown]
  - Rash macular [Recovered/Resolved]
  - Dry skin [Recovered/Resolved]
